FAERS Safety Report 4366184-9 (Version None)
Quarter: 2004Q2

REPORT INFORMATION
  Report Type: 
  Country: None (occurrence: None)
  Receive Date: 20040524
  Receipt Date: 20040503
  Transmission Date: 20050107
  Serious: Yes (Hospitalization)
  Sender: FDA-Public Use
  Company Number: 2004213946DE

PATIENT
  Age: 66 Year
  Sex: Female
  Weight: 55 kg

DRUGS (4)
  1. EPIRUBICIN [Suspect]
     Indication: BREAST CANCER
     Dosage: 150 MG/M2, 3 CYCLES, IV
     Route: 042
     Dates: start: 20031219, end: 20040123
  2. CYCLOPHOSPHAMIDE [Suspect]
     Indication: BREAST CANCER
     Dosage: 742 MG, CYCLIC, IV
     Route: 042
     Dates: start: 20040408, end: 20040408
  3. COMPARATOR-METHOTREXATE(METHOTREXATE) TABLET [Suspect]
     Indication: BREAST CANCER
     Dosage: 59 MG, CYCLIC, IV
     Route: 042
     Dates: start: 20040408, end: 20040408
  4. FLUOROURACIL [Suspect]
     Indication: BREAST CANCER
     Dosage: 890 MG, CYCLIC, IV
     Route: 042
     Dates: start: 20040408, end: 20040408

REACTIONS (3)
  - ANAEMIA [None]
  - STOMATITIS [None]
  - WHITE BLOOD CELL COUNT DECREASED [None]
